FAERS Safety Report 14269452 (Version 2)
Quarter: 2018Q2

REPORT INFORMATION
  Report Type: Spontaneous
  Country: DE (occurrence: DE)
  Receive Date: 20171211
  Receipt Date: 20180425
  Transmission Date: 20180711
  Serious: Yes (Other)
  Sender: FDA-Public Use
  Company Number: DE-OTSUKA-2017_010424

PATIENT
  Age: 17 Year
  Sex: Female

DRUGS (6)
  1. ABILIFY [Suspect]
     Active Substance: ARIPIPRAZOLE
     Indication: ATTENTION DEFICIT/HYPERACTIVITY DISORDER
     Dosage: 5 MG, DAY
     Route: 048
     Dates: start: 2015
  2. SPASMEX (TROSPIUM CHLORIDE) [Suspect]
     Active Substance: TROSPIUM CHLORIDE
     Indication: ENURESIS
     Dosage: 45 MG, QD (45-0-0MG/DAY)
     Route: 065
  3. ABILIFY [Suspect]
     Active Substance: ARIPIPRAZOLE
     Dosage: 5 MG, QD (5-0-0MG/DAY)
     Route: 065
     Dates: start: 201412, end: 201701
  4. ABILIFY [Suspect]
     Active Substance: ARIPIPRAZOLE
     Indication: COMMUNICATION DISORDER
     Dosage: UNK
     Route: 065
  5. ABILIFY [Suspect]
     Active Substance: ARIPIPRAZOLE
     Dosage: 2.5 MG, UNK
     Route: 065
     Dates: start: 201701, end: 2017
  6. MEDIKINET [Suspect]
     Active Substance: METHYLPHENIDATE
     Indication: DISTURBANCE IN ATTENTION
     Dosage: 50 MG, QD (50-0-0MG/DAY)
     Route: 065
     Dates: start: 2014

REACTIONS (5)
  - Suicide attempt [Unknown]
  - Enuresis [Unknown]
  - Impulsive behaviour [Unknown]
  - Therapy cessation [Unknown]
  - Product use in unapproved indication [Unknown]

NARRATIVE: CASE EVENT DATE: 2015
